FAERS Safety Report 7333845-9 (Version None)
Quarter: 2011Q1

REPORT INFORMATION
  Report Type: 
  Country: None (occurrence: None)
  Receive Date: 20110307
  Receipt Date: 20110223
  Transmission Date: 20110831
  Serious: Yes (Life-Threatening, Other)
  Sender: FDA-Public Use
  Company Number: DE-AMGEN-US389529

PATIENT
  Age: 59 Year
  Sex: Female
  Weight: 75 kg

DRUGS (3)
  1. ARAVA [Concomitant]
     Dosage: 10 MG, ONCE
     Route: 048
     Dates: start: 20060601
  2. ARAVA [Concomitant]
     Indication: RHEUMATOID ARTHRITIS
     Dosage: 10 MG, ONE TIME DOSE
     Route: 048
     Dates: end: 20060301
  3. ENBREL [Suspect]
     Indication: RHEUMATOID ARTHRITIS
     Dosage: 50 MG, UNK
     Route: 058
     Dates: start: 20060901

REACTIONS (2)
  - RHEUMATOID ARTHRITIS [None]
  - CERVIX CARCINOMA [None]
